FAERS Safety Report 16184841 (Version 7)
Quarter: 2019Q4

REPORT INFORMATION
  Report Type: Report from Study
  Country: GB (occurrence: GB)
  Receive Date: 20190411
  Receipt Date: 20191022
  Transmission Date: 20200122
  Serious: Yes (Death, Hospitalization)
  Sender: FDA-Public Use
  Company Number: GB-EISAI MEDICAL RESEARCH-EC-2017-032524

PATIENT
  Age: 21 Year
  Sex: Male
  Weight: 69.4 kg

DRUGS (12)
  1. LENVATINIB [Suspect]
     Active Substance: LENVATINIB
     Route: 048
     Dates: start: 20170310
  2. IFOSFAMIDE. [Suspect]
     Active Substance: IFOSFAMIDE
     Indication: OSTEOSARCOMA
     Route: 041
     Dates: start: 20161221, end: 20170225
  3. OMEPRAZOLE. [Concomitant]
     Active Substance: OMEPRAZOLE
  4. OXYCODONE [Concomitant]
     Active Substance: OXYCODONE
  5. SEVREDOL [Concomitant]
     Active Substance: MORPHINE
  6. ETOPOSIDE. [Suspect]
     Active Substance: ETOPOSIDE
     Indication: OSTEOSARCOMA
     Route: 041
     Dates: start: 20161221, end: 20170225
  7. OCTENIDINE [Concomitant]
     Active Substance: OCTENIDINE
  8. TRANEXAMIC ACID. [Concomitant]
     Active Substance: TRANEXAMIC ACID
  9. LENVATINIB [Suspect]
     Active Substance: LENVATINIB
     Indication: OSTEOSARCOMA
     Route: 048
     Dates: start: 20161221, end: 20170308
  10. LENVATINIB [Suspect]
     Active Substance: LENVATINIB
     Route: 048
     Dates: start: 20190306, end: 20190407
  11. TAZOCIN [Concomitant]
     Active Substance: PIPERACILLIN SODIUM\TAZOBACTAM SODIUM
  12. DOCUSATE [Concomitant]
     Active Substance: DOCUSATE

REACTIONS (5)
  - Febrile neutropenia [Recovered/Resolved]
  - Pneumothorax [Not Recovered/Not Resolved]
  - Pleural effusion [Not Recovered/Not Resolved]
  - Bacteraemia [Recovered/Resolved]
  - Brain injury [Fatal]

NARRATIVE: CASE EVENT DATE: 20170306
